FAERS Safety Report 15469185 (Version 2)
Quarter: 2018Q4

REPORT INFORMATION
  Report Type: Spontaneous
  Country: US (occurrence: US)
  Receive Date: 20181005
  Receipt Date: 20181125
  Transmission Date: 20190205
  Serious: No
  Sender: FDA-Public Use
  Company Number: US-009507513-1810USA000391

PATIENT
  Age: 46 Year
  Sex: Female
  Weight: 100.68 kg

DRUGS (4)
  1. ZEPATIER [Suspect]
     Active Substance: ELBASVIR\GRAZOPREVIR
     Dosage: 1 TABLET, DAILY
     Route: 048
     Dates: start: 20180905
  2. PRILOSEC [Concomitant]
     Active Substance: OMEPRAZOLE MAGNESIUM
  3. LOSARTAN. [Concomitant]
     Active Substance: LOSARTAN
     Dosage: UNK
  4. GABAPENTIN. [Concomitant]
     Active Substance: GABAPENTIN
     Dosage: UNK

REACTIONS (3)
  - Abdominal discomfort [Recovered/Resolved]
  - Burning sensation [Recovered/Resolved]
  - Depression [Not Recovered/Not Resolved]

NARRATIVE: CASE EVENT DATE: 20180907
